FAERS Safety Report 18243196 (Version 1)
Quarter: 2020Q3

REPORT INFORMATION
  Report Type: Report from Study
  Country: CA (occurrence: CA)
  Receive Date: 20200908
  Receipt Date: 20200908
  Transmission Date: 20201103
  Serious: Yes (Other)
  Sender: FDA-Public Use
  Company Number: CA-JNJFOC-20200845382

PATIENT

DRUGS (4)
  1. REMICADE [Suspect]
     Active Substance: INFLIXIMAB
     Indication: CROHN^S DISEASE
     Route: 042
  2. REMICADE [Suspect]
     Active Substance: INFLIXIMAB
     Indication: COLITIS
  3. REMICADE [Suspect]
     Active Substance: INFLIXIMAB
     Indication: COLITIS ULCERATIVE
  4. METHOTREXATE. [Concomitant]
     Active Substance: METHOTREXATE
     Route: 048

REACTIONS (13)
  - Lupus-like syndrome [Unknown]
  - Alopecia areata [Unknown]
  - Granuloma annulare [Unknown]
  - Pyoderma gangrenosum [Unknown]
  - Hidradenitis [Unknown]
  - Staphylococcal infection [Unknown]
  - Type IV hypersensitivity reaction [Unknown]
  - Cyanosis [Unknown]
  - Herpes zoster [Unknown]
  - Eczema [Unknown]
  - Urticaria [Unknown]
  - Psoriasis [Unknown]
  - Bacterial infection [Unknown]
